FAERS Safety Report 4497497-8 (Version None)
Quarter: 2004Q4

REPORT INFORMATION
  Report Type: 
  Country: None (occurrence: None)
  Receive Date: 20041104
  Receipt Date: 20041006
  Transmission Date: 20050328
  Serious: Yes (Hospitalization)
  Sender: FDA-Public Use
  Company Number: 200410955BVD

PATIENT
  Age: 32 Year
  Sex: Female
  Weight: 50 kg

DRUGS (3)
  1. CIPROFLOXACIN [Suspect]
     Indication: URINARY TRACT INFECTION
     Dosage: 250 MG, BID, ORAL
     Route: 048
     Dates: start: 20040924, end: 20041001
  2. CIPROFLOXACIN [Suspect]
     Indication: URINARY TRACT INFECTION
     Dosage: 250 MG, BID, ORAL
     Route: 048
     Dates: start: 20041003, end: 20041004
  3. SUPRAX [Concomitant]

REACTIONS (4)
  - BLOOD ALBUMIN INCREASED [None]
  - GUILLAIN-BARRE SYNDROME [None]
  - HEADACHE [None]
  - RHEUMATOID FACTOR POSITIVE [None]
